FAERS Safety Report 5264625-6 (Version None)
Quarter: 2007Q1

REPORT INFORMATION
  Report Type: 
  Country: None (occurrence: None)
  Receive Date: 20061122
  Receipt Date: 20060227
  Transmission Date: 20070707
  Serious: Yes (Hospitalization)
  Sender: FDA-Public Use
  Company Number: 2006MP000220

PATIENT
  Age: 47 Year
  Sex: Male
  Weight: 100.3 kg

DRUGS (6)
  1. GLIADEL [Suspect]
     Indication: GLIOBLASTOMA MULTIFORME
     Dosage: 61.6 MG;X1;ICER
     Route: 018
     Dates: start: 20060213, end: 20060213
  2. 06-BENYLGUANINE (06BG) [Suspect]
     Indication: GLIOBLASTOMA MULTIFORME
     Dosage: 30 MG/M**2;QD;IV
     Route: 042
     Dates: start: 20060213, end: 20060217
  3. DECADRON [Concomitant]
  4. ZANTAC [Concomitant]
  5. DILANTIN [Concomitant]
  6. OXYCODONE [Concomitant]

REACTIONS (6)
  - HALLUCINATION [None]
  - INTRACRANIAL HYPOTENSION [None]
  - MENTAL STATUS CHANGES [None]
  - PNEUMONIA [None]
  - VENOUS THROMBOSIS LIMB [None]
  - WOUND INFECTION STAPHYLOCOCCAL [None]
